FAERS Safety Report 7020703-2 (Version None)
Quarter: 2010Q3

REPORT INFORMATION
  Report Type: 
  Country: None (occurrence: None)
  Receive Date: 20100929
  Receipt Date: 20100921
  Transmission Date: 20110219
  Serious: Yes (Hospitalization, Other)
  Sender: FDA-Public Use
  Company Number: PHHY2010MX63215

PATIENT
  Sex: Female

DRUGS (1)
  1. TRILEPTAL [Suspect]
     Indication: EPILEPSY
     Dosage: 300 MG, TID
     Route: 048
     Dates: start: 20060101

REACTIONS (3)
  - BRAIN NEOPLASM [None]
  - BRAIN TUMOUR OPERATION [None]
  - PETIT MAL EPILEPSY [None]
